FAERS Safety Report 9235465 (Version 1)
Quarter: 2013Q1

REPORT INFORMATION
  Report Type: Spontaneous
  Country: US (occurrence: None)
  Receive Date: 20121031
  Receipt Date: 20121031
  Transmission Date: 20140127
  Serious: Yes (Other)
  Sender: FDA-Public Use
  Company Number: PHEH2012US016089

PATIENT
  Sex: Male

DRUGS (1)
  1. GILENYA [Suspect]
     Route: 048
     Dates: start: 20120808, end: 20120810

REACTIONS (4)
  - Heart rate decreased [None]
  - Insomnia [None]
  - Feeling abnormal [None]
  - Asthenia [None]
